FAERS Safety Report 5406011-1 (Version None)
Quarter: 2007Q3

REPORT INFORMATION
  Report Type: 
  Country: None (occurrence: None)
  Receive Date: 20070802
  Receipt Date: 20070802
  Transmission Date: 20080115
  Serious: Yes (Life-Threatening, Hospitalization)
  Sender: FDA-Public Use
  Company Number: None

PATIENT
  Age: 84 Year
  Sex: Male
  Weight: 103.4201 kg

DRUGS (8)
  1. MAXIPIME [Suspect]
     Indication: DEVICE RELATED INFECTION
     Dosage: 2 G IV Q 12 H
     Route: 042
     Dates: start: 20070628, end: 20070711
  2. MAXIPIME [Suspect]
     Indication: STREPTOCOCCAL INFECTION
     Dosage: 1 G IV Q 24H
     Route: 042
     Dates: start: 20070718, end: 20070719
  3. DUONEB [Concomitant]
  4. LOVENOX [Concomitant]
  5. MIRTAZAPINE [Concomitant]
  6. OLIGOFRUCTOSE [Concomitant]
  7. OXYCODONE HCL [Concomitant]
  8. TYLENOL (CAPLET) [Concomitant]

REACTIONS (4)
  - CREATININE RENAL CLEARANCE DECREASED [None]
  - INCOHERENT [None]
  - LETHARGY [None]
  - UNRESPONSIVE TO STIMULI [None]
